FAERS Safety Report 18106523 (Version 1)
Quarter: 2020Q3

REPORT INFORMATION
  Report Type: Spontaneous
  Country: CH (occurrence: CH)
  Receive Date: 20200803
  Receipt Date: 20200803
  Transmission Date: 20201103
  Serious: Yes (Other)
  Sender: FDA-Public Use
  Company Number: CH-JNJFOC-20200639565

PATIENT
  Age: 68 Year
  Sex: Female

DRUGS (6)
  1. TILUR [Concomitant]
     Active Substance: ACEMETACIN
  2. ACETYLSALICYLIC ACID [Suspect]
     Active Substance: ASPIRIN
     Dosage: 100 MG, QD
     Route: 065
     Dates: start: 20200306
  3. RIVAROXABAN [Suspect]
     Active Substance: RIVAROXABAN
     Route: 048
     Dates: start: 20200207, end: 20200306
  4. ASPIRIN. [Concomitant]
     Active Substance: ASPIRIN
  5. RIVAROXABAN [Suspect]
     Active Substance: RIVAROXABAN
     Indication: PRODUCT USED FOR UNKNOWN INDICATION
     Dosage: 2.5 MG, BID
     Route: 048
     Dates: start: 20200306, end: 20200611
  6. PREGABALIN. [Concomitant]
     Active Substance: PREGABALIN

REACTIONS (2)
  - Dyspnoea [Unknown]
  - Haemothorax [Unknown]

NARRATIVE: CASE EVENT DATE: 20200610
